FAERS Safety Report 7179780-0 (Version None)
Quarter: 2010Q4

REPORT INFORMATION
  Report Type: 
  Country: None (occurrence: None)
  Receive Date: 20101221
  Receipt Date: 20101103
  Transmission Date: 20110411
  Serious: Yes (Death)
  Sender: FDA-Public Use
  Company Number: GB-AMGEN-US337691

PATIENT

DRUGS (24)
  1. ETANERCEPT [Suspect]
     Indication: RHEUMATOID ARTHRITIS
     Dosage: 25 MG, 2 TIMES/WK
     Route: 058
     Dates: start: 20060821
  2. ETANERCEPT [Suspect]
     Dosage: 25 MG, 2 TIMES/WK
     Route: 058
     Dates: start: 20090318, end: 20090615
  3. TRAMADOL [Concomitant]
     Dosage: UNK UNK, UNK
  4. TRAMADOL [Concomitant]
     Dosage: UNKNOWN
  5. SULFASALAZINE [Concomitant]
     Dosage: UNK UNK, UNK
  6. SULFASALAZINE [Concomitant]
     Dosage: UNKNOWN
  7. AZATHIOPRINE [Concomitant]
     Dosage: UNK UNK, UNK
     Dates: end: 20040615
  8. AZATHIOPRINE [Concomitant]
     Dosage: UNKNOWN
  9. CALCIUM CARBONATE [Concomitant]
     Dosage: UNK UNK, UNK
  10. GAVISCON [Concomitant]
     Dosage: UNK UNK, UNK
  11. GAVISCON [Concomitant]
     Dosage: UNKNOWN
  12. HYDROXYCHLOROQUINE [Concomitant]
     Dosage: UNK UNK, UNK
  13. HYDROXYCHLOROQUINE [Concomitant]
     Dosage: UNKNOWN
  14. NAPROXEN [Concomitant]
     Dosage: UNK UNK, UNK
  15. NAPROXEN [Concomitant]
     Dosage: UNKNOWN
  16. PREDNISOLONE [Concomitant]
     Dosage: 15 MG, QD
  17. PREDNISOLONE [Concomitant]
     Dosage: UNK UNK, UNK
  18. ENBREL [Suspect]
     Indication: RHEUMATOID ARTHRITIS
     Route: 058
     Dates: start: 20060821
  19. ENBREL [Suspect]
     Route: 058
     Dates: start: 20090318, end: 20090615
  20. CALCICHEW [Concomitant]
     Dosage: UNKNOWN
  21. ACYCLOVIR SODIUM [Concomitant]
  22. MERCAPTOPURINE [Concomitant]
     Dosage: UNKNOWN
  23. MST [Concomitant]
     Dosage: UNKNOWN
  24. ORAMORPH SR [Concomitant]
     Dosage: UNKNOWN

REACTIONS (4)
  - ACUTE MYELOID LEUKAEMIA [None]
  - BRONCHOPNEUMONIA [None]
  - MYELODYSPLASTIC SYNDROME [None]
  - NEUTROPENIC SEPSIS [None]
